FAERS Safety Report 24458508 (Version 1)
Quarter: 2024Q4

REPORT INFORMATION
  Report Type: Spontaneous
  Country: US (occurrence: US)
  Receive Date: 20241018
  Receipt Date: 20241018
  Transmission Date: 20250115
  Serious: No
  Sender: DERMAVANT SCIENCES, INC.
  Company Number: US-Dermavant-001266

PATIENT
  Sex: Male

DRUGS (10)
  1. VTAMA [Suspect]
     Active Substance: TAPINAROF
     Indication: Psoriasis
     Route: 061
     Dates: start: 20240610
  2. ROSUVASTATIN [Concomitant]
     Active Substance: ROSUVASTATIN
  3. CARDURA [Concomitant]
     Active Substance: DOXAZOSIN MESYLATE
  4. FINASTERIDE [Concomitant]
     Active Substance: FINASTERIDE
  5. METOPROLOL [Concomitant]
     Active Substance: METOPROLOL
  6. MOBIC [Concomitant]
     Active Substance: MELOXICAM
  7. PANTOPRAZOLE [Concomitant]
     Active Substance: PANTOPRAZOLE
  8. ASPIRIN [Concomitant]
     Active Substance: ASPIRIN
  9. VITAMIN C [Concomitant]
     Active Substance: ASCORBIC ACID
  10. VITAMINS [Concomitant]
     Active Substance: VITAMINS

REACTIONS (1)
  - Pruritus [Unknown]
